FAERS Safety Report 8333614 (Version 3)
Quarter: 2013Q3

REPORT INFORMATION
  Report Type: Spontaneous
  Country: US (occurrence: US)
  Receive Date: 20111130
  Receipt Date: 20130828
  Transmission Date: 20140515
  Serious: Yes (Hospitalization, Other)
  Sender: FDA-Public Use
  Company Number: US201107006523

PATIENT
  Age: 77 Year
  Sex: Female
  Weight: 112.93 kg

DRUGS (11)
  1. BYETTA PEN DISPOSABLE [Suspect]
     Dosage: 08SEP2008 TO 29NOV2008,30OCT2008TO10JAN2012,04MAR2009TO25SEP2009 AND 28OCT2009TO18APR2010
     Dates: start: 2005
  2. PRILOSEC [Concomitant]
  3. BUMEX [Concomitant]
  4. LORTAB [Concomitant]
  5. GABAPENTIN [Concomitant]
  6. ZYRTEC [Concomitant]
  7. LISINOPRIL [Concomitant]
  8. PAXIL [Concomitant]
  9. ASPIRIN [Concomitant]
  10. METFORMIN [Concomitant]
  11. LIPITOR [Concomitant]

REACTIONS (3)
  - Renal failure chronic [Unknown]
  - Pancreatitis [Unknown]
  - Renal failure acute [Recovered/Resolved]
